FAERS Safety Report 12747197 (Version 2)
Quarter: 2016Q4

REPORT INFORMATION
  Report Type: Spontaneous
  Country: US (occurrence: US)
  Receive Date: 20160915
  Receipt Date: 20161027
  Transmission Date: 20170207
  Serious: Yes (Hospitalization, Other)
  Sender: FDA-Public Use
  Company Number: US-SAOL THERAPEUTICS-2016SAO00319

PATIENT
  Age: 51 Year
  Sex: Female
  Weight: 68.27 kg

DRUGS (62)
  1. LIORESAL [Suspect]
     Active Substance: BACLOFEN
     Indication: MUSCLE SPASTICITY
     Dosage: 1900.4 ?G /DAY
     Dates: start: 20160517
  2. LIORESAL [Suspect]
     Active Substance: BACLOFEN
     Dosage: 1800 ?G, \DAY
     Route: 037
  3. ARIPIPRAZOLE. [Concomitant]
     Active Substance: ARIPIPRAZOLE
     Dosage: 10 MG, 2X/DAY
  4. ARMODAFINIL. [Concomitant]
     Active Substance: ARMODAFINIL
     Dosage: 250 MG, 1X/DAY
     Route: 048
  5. BIOTENE MOUTHWASH [Concomitant]
     Active Substance: CETYLPYRIDINIUM CHLORIDE
     Dosage: UNK, 2X/DAY
  6. DIAZEPAM. [Concomitant]
     Active Substance: DIAZEPAM
     Dosage: 10 MG, 4X/DAY
  7. FUROSEMIDE. [Concomitant]
     Active Substance: FUROSEMIDE
     Dosage: 160 MG, 1X/DAY
  8. RANITIDINE HCL [Concomitant]
     Active Substance: RANITIDINE HYDROCHLORIDE
     Dosage: 150 MG, 2X/DAY
     Route: 048
  9. RIFAXIMIN [Concomitant]
     Active Substance: RIFAXIMIN
     Dosage: 200 MG, 2X/DAY
     Route: 048
  10. TERBINAFINE HCL CREAM [Concomitant]
     Dosage: UNK, 2X/DAY
     Route: 061
  11. ZOFRAN [Concomitant]
     Active Substance: ONDANSETRON HYDROCHLORIDE
     Dosage: 1 TABLETS, 3X/DAY
  12. DICLOFENAC NA 1% TOPICAL GEL [Concomitant]
     Dosage: UNK, 3X/DAY
     Route: 061
  13. DOCUSATE NA 50MG / SENNOSIDES 8.6MG [Concomitant]
     Dosage: 2 TABLETS, 3X/DAY
     Route: 048
  14. HYDROCORTISONE CREAM [Concomitant]
     Active Substance: HYDROCORTISONE
     Dosage: UNK, 2X/DAY
     Route: 061
  15. LACTULOSE 10GM/15ML ORAL SOLUTION [Concomitant]
     Dosage: 45 ML, 2X/DAY
     Route: 048
  16. METHENAMINE HIPPURATE. [Concomitant]
     Active Substance: METHENAMINE HIPPURATE
     Dosage: 1 G, 2X/DAY
  17. MULTIVITAMIN [Concomitant]
     Active Substance: VITAMINS
     Dosage: 1 DOSAGE UNITS, 1X/DAY
     Route: 048
  18. OXYBUTYNIN 3% GEL PUMP [Concomitant]
     Route: 061
  19. PERCOCET [Concomitant]
     Active Substance: ACETAMINOPHEN\OXYCODONE HYDROCHLORIDE
     Dosage: 1 TABLETS, 2X/DAY
     Route: 048
  20. SODIUM CHLORIDE 0.65% SOLUTION NASAL SPRAY [Concomitant]
     Dosage: UNK, 4X/DAY
     Route: 045
  21. LIORESAL [Suspect]
     Active Substance: BACLOFEN
     Dosage: 1799.9 ?G, \DAY
     Dates: start: 20160912
  22. DIPHENHYDRAMINE HCL 12.5MG/5ML ELIXIR [Concomitant]
     Dosage: 5 ML, UP TO 2X/DAY
     Route: 048
  23. DULOXETINE HCL [Concomitant]
     Active Substance: DULOXETINE HYDROCHLORIDE
     Dosage: 30 MG, 2X/DAY
     Route: 048
  24. FLUOCINOLONE ACETONIDE. [Concomitant]
     Active Substance: FLUOCINOLONE ACETONIDE
     Dosage: 5 GTT, 2X/DAY
  25. OMEPRAZOLE. [Concomitant]
     Active Substance: OMEPRAZOLE
     Dosage: 40 MG, 2X/DAY
  26. POLYVINYL ALC 1.4% OPT SOLUTION [Concomitant]
     Dosage: UNK, 2X/DAY
     Route: 047
  27. PROCHLORPERAZINE. [Concomitant]
     Active Substance: PROCHLORPERAZINE
     Dosage: 5 MG, UP TO 4X/DAY
     Route: 048
  28. SODIUM FLUORIDE DENTAL CREAM [Concomitant]
     Dosage: UNK, 2X/DAY
  29. SUMATRIPTAN SUCC [Concomitant]
     Active Substance: SUMATRIPTAN SUCCINATE
     Route: 058
  30. TEMAZEPAM. [Concomitant]
     Active Substance: TEMAZEPAM
     Dosage: 15 MG, 1X/DAY
     Route: 048
  31. LIDODERM [Concomitant]
     Active Substance: LIDOCAINE
     Dosage: 3 DOSAGE UNITS, 2X/DAY
     Route: 061
  32. LIORESAL [Suspect]
     Active Substance: BACLOFEN
     Dosage: 1799.9 ?G, \DAY
     Dates: start: 20160721
  33. PHOSPHATES ENEMA [Concomitant]
     Active Substance: SODIUM PHOSPHATE, DIBASIC\SODIUM PHOSPHATE, MONOBASIC
     Route: 054
  34. POLY-ENEMA RTL (COMPOUNDED) [Concomitant]
     Dosage: UNK, AS NEEDED
     Route: 054
  35. POTASSIUM BICARBONATE 25MEQ [Concomitant]
     Dosage: 50 MEQ, 1X/DAY
     Route: 048
  36. TRIAMCINOLONE ACETONIDE. [Concomitant]
     Active Substance: TRIAMCINOLONE ACETONIDE
     Dosage: UNK, 2X/DAY
     Route: 061
  37. IMITREX [Concomitant]
     Active Substance: SUMATRIPTAN SUCCINATE
     Dosage: 1 UNK, AS NEEDED
     Route: 058
  38. AMOXICILLIN 875 / CLAV K 125MG [Concomitant]
     Dosage: 1 TABLETS, 2X/DAY
     Route: 048
  39. LIDOCAINE 5% PATCH [Concomitant]
     Active Substance: LIDOCAINE
  40. SINUS RINSE NEILMED PACKET [Concomitant]
     Dosage: UNK, 4X/DAY
  41. VITAMIN B COMPLEX / VITAMIN C [Concomitant]
     Dosage: 1 DOSAGE UNITS, 1X/DAY
     Route: 048
  42. ALBUTEROL 90MCG [Concomitant]
     Dosage: UNK, UP TO 4X/DAY
  43. AMITRIPTYLINE [Concomitant]
     Active Substance: AMITRIPTYLINE
     Dosage: 25 MG, 1X/DAY
     Route: 048
  44. ASCORBIC ACID. [Concomitant]
     Active Substance: ASCORBIC ACID
     Dosage: 1000 MG, 4X/DAY
  45. BACLOFEN. [Concomitant]
     Active Substance: BACLOFEN
     Dosage: 20 MG, 3X/DAY
  46. ABILIFY [Concomitant]
     Active Substance: ARIPIPRAZOLE
     Dosage: 0.5 TABLETS, 1X/DAY
  47. LIORESAL [Suspect]
     Active Substance: BACLOFEN
     Indication: MULTIPLE SCLEROSIS
     Dosage: 1698.4 ?G, \DAY
     Dates: start: 20160614
  48. ACYCLOVIR 5% OINTMENT [Concomitant]
     Active Substance: ACYCLOVIR
     Dosage: UNK, 5X/DAY
     Route: 061
  49. CALCIUM 500MG / VITAMIN D 200 IU [Concomitant]
     Dosage: 1 TABLETS, 2X/DAY
     Route: 048
  50. CETIRIZINE HCL [Concomitant]
     Active Substance: CETIRIZINE HYDROCHLORIDE
     Dosage: 10 MG, 1X/DAY
  51. CHOLECALCIFEROL [Concomitant]
     Active Substance: CHOLECALCIFEROL
     Dosage: 1000 IU, 1X/DAY
     Route: 048
  52. MUPIROCIN. [Concomitant]
     Active Substance: MUPIROCIN
     Dosage: UNK, 2X/DAY
     Route: 061
  53. ONDANSETRON HCL [Concomitant]
     Active Substance: ONDANSETRON HYDROCHLORIDE
     Dosage: 4 MG, 3X/DAY
  54. CYMBALTA [Concomitant]
     Active Substance: DULOXETINE HYDROCHLORIDE
     Dosage: 30 MG, 2X/DAY
  55. FLUOCINONIDE 0.05% CREAM [Concomitant]
     Dosage: UNK, 2X/DAY
     Route: 061
  56. IPRATROPIUM BR [Concomitant]
     Dosage: UNK, 2X/DAY
     Route: 045
  57. MOMETASONE FUROATE. [Concomitant]
     Active Substance: MOMETASONE FUROATE
     Dosage: UNK, 1X/DAY
     Route: 045
  58. QUETIAPINE FUMARATE. [Concomitant]
     Active Substance: QUETIAPINE FUMARATE
     Dosage: 50 MG, 1X/DAY
     Route: 048
  59. SPIRONOLACTONE. [Concomitant]
     Active Substance: SPIRONOLACTONE
     Dosage: 25 MG, 1X/DAY
     Route: 048
  60. TOLTERODINE TARTRATE. [Concomitant]
     Active Substance: TOLTERODINE TARTRATE
     Dosage: 4 MG, 1X/DAY
     Route: 048
  61. VALACYCLOVIR HCL [Concomitant]
     Active Substance: VALACYCLOVIR HYDROCHLORIDE
     Dosage: 1000 MG, 2X/DAY
  62. BENADRYL [Concomitant]
     Active Substance: DIPHENHYDRAMINE HYDROCHLORIDE
     Dosage: 0.5 CAPSULES, AS NEEDED

REACTIONS (31)
  - Hypersomnia [Unknown]
  - Hiatus hernia [Unknown]
  - Spinal osteoarthritis [Unknown]
  - Nerve root compression [Unknown]
  - Chills [Unknown]
  - Muscular weakness [Unknown]
  - Implant site extravasation [Unknown]
  - Urinary incontinence [Unknown]
  - Gastroenteritis [Recovered/Resolved]
  - Staphylococcal infection [Unknown]
  - Muscle spasticity [Unknown]
  - Nausea [Unknown]
  - Faecaloma [Unknown]
  - Constipation [Unknown]
  - Nephrolithiasis [Unknown]
  - Insomnia [Unknown]
  - Implant site pain [Unknown]
  - Implant site pruritus [Unknown]
  - Hydronephrosis [Unknown]
  - Back pain [Unknown]
  - Implant site swelling [Unknown]
  - Hypersensitivity [Unknown]
  - Scoliosis [Unknown]
  - Hepatic steatosis [Unknown]
  - Alanine aminotransferase increased [Unknown]
  - Peripheral swelling [Unknown]
  - Implant site infection [Unknown]
  - Hypotonia [Unknown]
  - Weight decreased [Unknown]
  - Vomiting [Unknown]
  - Memory impairment [Unknown]

NARRATIVE: CASE EVENT DATE: 2016
